FAERS Safety Report 15482619 (Version 1)
Quarter: 2018Q4

REPORT INFORMATION
  Report Type: Spontaneous
  Country: US (occurrence: US)
  Receive Date: 20181003
  Receipt Date: 20181003
  Transmission Date: 20190205
  Serious: Yes (Other)
  Sender: FDA-Public Use
  Company Number: None

PATIENT
  Age: 59 Year
  Sex: Male

DRUGS (1)
  1. REBIF [Suspect]
     Active Substance: INTERFERON BETA-1A
     Indication: MULTIPLE SCLEROSIS
     Dosage: ?          OTHER FREQUENCY:THREE TIMES A WEEK;?STRENGTH 44 UNK?
     Route: 058
     Dates: start: 20180119

REACTIONS (3)
  - Multiple sclerosis relapse [None]
  - Fatigue [None]
  - Laryngeal operation [None]

NARRATIVE: CASE EVENT DATE: 20181002
